FAERS Safety Report 19611772 (Version 2)
Quarter: 2021Q3

REPORT INFORMATION
  Report Type: Report from Study
  Country: None (occurrence: AU)
  Receive Date: 20210727
  Receipt Date: 20210825
  Transmission Date: 20211014
  Serious: Yes (Death)
  Sender: FDA-Public Use
  Company Number: AU-ABBVIE-21K-008-4010499-00

PATIENT
  Age: 82 Year
  Sex: Male
  Weight: 55 kg

DRUGS (2)
  1. DUODOPA [Suspect]
     Active Substance: CARBIDOPA\LEVODOPA
  2. DUODOPA [Suspect]
     Active Substance: CARBIDOPA\LEVODOPA
     Indication: PARKINSON^S DISEASE
     Dosage: MD: 4.5 ML/HR; CD:4.8MLS/HR; ED 2.1MLS NIGHT PUMP: CD: 2.1MLS/HR; ED 1ML/1HR LO.100ML GEL
     Route: 050
     Dates: start: 20150706

REACTIONS (2)
  - Device kink [Unknown]
  - Respiratory tract infection [Fatal]

NARRATIVE: CASE EVENT DATE: 20210120
